FAERS Safety Report 9288658 (Version 2)
Quarter: 2013Q2

REPORT INFORMATION
  Report Type: Spontaneous
  Country: JP (occurrence: JP)
  Receive Date: 20130514
  Receipt Date: 20130603
  Transmission Date: 20140414
  Serious: Yes (Death, Other)
  Sender: FDA-Public Use
  Company Number: PHHY2013JP046704

PATIENT
  Age: 56 Year
  Sex: Female

DRUGS (2)
  1. VALSARTAN [Suspect]
     Indication: HYPERTENSION
     Dosage: 80 MG, DAILY
     Route: 048
  2. SUNITINIB [Suspect]
     Indication: METASTATIC RENAL CELL CARCINOMA
     Dosage: 50 MG,  PER DAY
     Route: 048

REACTIONS (9)
  - General physical health deterioration [Fatal]
  - Cardiac failure congestive [Unknown]
  - Renal impairment [Unknown]
  - Blood creatinine increased [Unknown]
  - Blood urea increased [Unknown]
  - Urine output decreased [Unknown]
  - Volume blood decreased [Unknown]
  - Capillary permeability increased [Unknown]
  - Hypotension [Unknown]
